FAERS Safety Report 13350410 (Version 2)
Quarter: 2017Q1

REPORT INFORMATION
  Report Type: Spontaneous
  Country: FR (occurrence: FR)
  Receive Date: 20170320
  Receipt Date: 20170324
  Transmission Date: 20170429
  Serious: Yes (Hospitalization, Other)
  Sender: FDA-Public Use
  Company Number: FR-009507513-1703FRA008345

PATIENT
  Age: 73 Year
  Sex: Male

DRUGS (7)
  1. TARGOCID [Suspect]
     Active Substance: TEICOPLANIN
     Indication: ENDOCARDITIS
     Dosage: 700 MG DAILY
     Route: 042
     Dates: start: 20170119, end: 20170202
  2. ZOPICLONE [Suspect]
     Active Substance: ZOPICLONE
     Indication: INSOMNIA
     Dosage: 7.5 MG DAILY, ORAL FORMULATION
     Route: 065
     Dates: start: 20170121
  3. CUBICIN [Suspect]
     Active Substance: DAPTOMYCIN
     Dosage: UNK
     Route: 042
     Dates: start: 20170105, end: 20170113
  4. INEXIUM (ESOMEPRAZOLE MAGNESIUM) [Suspect]
     Active Substance: ESOMEPRAZOLE MAGNESIUM
     Dosage: ORAL FORMULATION
     Route: 065
     Dates: start: 20170116
  5. REPAGLINIDE. [Suspect]
     Active Substance: REPAGLINIDE
     Indication: DIABETES MELLITUS
     Dosage: 6 DF DAILY
     Route: 065
     Dates: start: 201701
  6. CEFTAROLINE FOSAMIL ACETATE [Suspect]
     Active Substance: CEFTAROLINE FOSAMIL
     Dosage: UNK
     Route: 042
     Dates: start: 20170113
  7. HYDROXYZINE HYDROCHLORIDE. [Suspect]
     Active Substance: HYDROXYZINE HYDROCHLORIDE
     Indication: PRURITUS
     Dosage: 25 MG DAILY, ORAL FORMULATION
     Route: 065
     Dates: start: 20170126, end: 20170201

REACTIONS (6)
  - Duodenal ulcer haemorrhage [Unknown]
  - Insomnia [Unknown]
  - Pruritus [Unknown]
  - Duodenal ulcer [Unknown]
  - Pancytopenia [Recovering/Resolving]
  - Melaena [Recovered/Resolved]

NARRATIVE: CASE EVENT DATE: 20170116
